FAERS Safety Report 15761177 (Version 6)
Quarter: 2021Q1

REPORT INFORMATION
  Report Type: Spontaneous
  Country: US (occurrence: US)
  Receive Date: 20181226
  Receipt Date: 20210201
  Transmission Date: 20210419
  Serious: No
  Sender: FDA-Public Use
  Company Number: US-PFIZER INC-2018527061

PATIENT
  Age: 81 Year
  Sex: Female
  Weight: 56.69 kg

DRUGS (4)
  1. ZINC CHLORIDE [Suspect]
     Active Substance: ZINC CHLORIDE
     Dosage: UNK
  2. MORPHINE SULFATE. [Suspect]
     Active Substance: MORPHINE SULFATE
     Dosage: UNK
  3. BACITRACIN. [Suspect]
     Active Substance: BACITRACIN
     Dosage: UNK
  4. BACITRACIN ZINC. [Suspect]
     Active Substance: BACITRACIN ZINC
     Dosage: UNK

REACTIONS (1)
  - Drug hypersensitivity [Unknown]
